FAERS Safety Report 21643985 (Version 2)
Quarter: 2022Q4

REPORT INFORMATION
  Report Type: Spontaneous
  Country: CZ (occurrence: CZ)
  Receive Date: 20221125
  Receipt Date: 20221219
  Transmission Date: 20230113
  Serious: Yes (Other)
  Sender: FDA-Public Use
  Company Number: CZ-BRISTOL-MYERS SQUIBB COMPANY-2022-141724

PATIENT
  Age: 70 Year
  Sex: Female

DRUGS (1)
  1. OPDIVO [Suspect]
     Active Substance: NIVOLUMAB
     Indication: Metastatic malignant melanoma
     Dosage: DOSE : 240 MG;     FREQ : EVERY 2 WEEKS
     Dates: start: 20210421, end: 20221109

REACTIONS (5)
  - Anaphylactoid reaction [Unknown]
  - Autoimmune thyroiditis [Unknown]
  - Condition aggravated [Unknown]
  - Vitiligo [Unknown]
  - Keloid scar [Recovered/Resolved]

NARRATIVE: CASE EVENT DATE: 20210505
